FAERS Safety Report 18776705 (Version 6)
Quarter: 2022Q3

REPORT INFORMATION
  Report Type: Report from Study
  Country: CA (occurrence: CA)
  Receive Date: 20210122
  Receipt Date: 20220829
  Transmission Date: 20221027
  Serious: Yes (Hospitalization)
  Sender: FDA-Public Use
  Company Number: CA-BAUSCH-BL-2021-002024

PATIENT
  Age: 62 Year
  Sex: Female
  Weight: 131.07 kg

DRUGS (12)
  1. CONTRAVE [Suspect]
     Active Substance: BUPROPION HYDROCHLORIDE\NALTREXONE HYDROCHLORIDE
     Indication: Weight control
     Dosage: 90MG/8MG; 2 TABLETS TWICE DAILY
     Route: 048
     Dates: start: 2020, end: 20210102
  2. CONTRAVE [Suspect]
     Active Substance: BUPROPION HYDROCHLORIDE\NALTREXONE HYDROCHLORIDE
     Dosage: 90MG/8MG; 2 TABLETS TWICE DAILY
     Route: 048
     Dates: start: 20210109
  3. CONTRAVE [Suspect]
     Active Substance: BUPROPION HYDROCHLORIDE\NALTREXONE HYDROCHLORIDE
     Dosage: 90MG/8MG; 1 TABLET IN MORNING DAILY
     Route: 048
     Dates: start: 20211027
  4. CONTRAVE [Suspect]
     Active Substance: BUPROPION HYDROCHLORIDE\NALTREXONE HYDROCHLORIDE
     Dosage: 90MG/8MG; 2 TABLETS TWICE A DAY
     Route: 048
     Dates: start: 20211117
  5. APIXABAN [Concomitant]
     Active Substance: APIXABAN
     Indication: Anticoagulant therapy
     Dosage: 10 MG (5 MG, 1 IN 12 HR)
     Route: 048
     Dates: start: 20210102
  6. PERINDOPRIL [Concomitant]
     Active Substance: PERINDOPRIL
     Indication: Hypertension
     Dosage: 4 MG, 1 IN 1 D
     Route: 048
     Dates: start: 20210102
  7. RAMIPRIL [Concomitant]
     Active Substance: RAMIPRIL
     Indication: Blood pressure abnormal
     Dosage: NOT SPECIFIED (10 MG, 1 IN 1 D)
     Route: 048
     Dates: start: 20210102
  8. ROSUVASTATIN [Concomitant]
     Active Substance: ROSUVASTATIN
     Indication: Blood cholesterol abnormal
     Dosage: 5 MG, 1 IN 1 D
     Route: 048
     Dates: end: 20210102
  9. ROSUVASTATIN [Concomitant]
     Active Substance: ROSUVASTATIN
     Dosage: 10 MG, 1 IN 1 D
     Route: 048
     Dates: start: 20210102, end: 20210425
  10. ROSUVASTATIN [Concomitant]
     Active Substance: ROSUVASTATIN
     Dosage: 5 MG, 1 IN 1 D
     Route: 048
     Dates: start: 20210426
  11. ALLOPURINOL [Concomitant]
     Active Substance: ALLOPURINOL
     Indication: Blood uric acid increased
     Dosage: 200 MG, 1 IN 1 D
     Route: 048
  12. AMLODIPINE [Concomitant]
     Active Substance: AMLODIPINE BESYLATE
     Indication: Hypertension
     Dosage: 5 MG, 1 IN 1 D
     Route: 048
     Dates: start: 20210102

REACTIONS (13)
  - Cerebrovascular accident [Unknown]
  - Atrial fibrillation [Recovered/Resolved]
  - Disease recurrence [Recovered/Resolved]
  - Sleep apnoea syndrome [Recovering/Resolving]
  - Dysphagia [Not Recovered/Not Resolved]
  - Nasopharyngitis [Not Recovered/Not Resolved]
  - Somnolence [Not Recovered/Not Resolved]
  - Thirst [Not Recovered/Not Resolved]
  - Fatigue [Unknown]
  - Therapy interrupted [Unknown]
  - Insurance issue [Unknown]
  - Drug titration error [Unknown]
  - Intentional product use issue [Unknown]

NARRATIVE: CASE EVENT DATE: 20210101
